FAERS Safety Report 14878822 (Version 1)
Quarter: 2018Q2

REPORT INFORMATION
  Report Type: Spontaneous
  Country: US (occurrence: US)
  Receive Date: 20180511
  Receipt Date: 20180511
  Transmission Date: 20180711
  Serious: No
  Sender: FDA-Public Use
  Company Number: US-APOTEX-2017AP017649

PATIENT
  Age: 49 Year
  Sex: Female

DRUGS (2)
  1. ALBUTEROL SULFATE  INHALATION SOLUTION [Suspect]
     Active Substance: ALBUTEROL SULFATE
     Indication: WHEEZING
  2. ALBUTEROL SULFATE  INHALATION SOLUTION [Suspect]
     Active Substance: ALBUTEROL SULFATE
     Indication: DYSPNOEA
     Dosage: UNK
     Route: 045

REACTIONS (1)
  - Exposure during pregnancy [Unknown]
